FAERS Safety Report 10976393 (Version 2)
Quarter: 2015Q2

REPORT INFORMATION
  Report Type: Spontaneous
  Country: US (occurrence: US)
  Receive Date: 20150401
  Receipt Date: 20150525
  Transmission Date: 20150821
  Serious: No
  Sender: FDA-Public Use
  Company Number: US-JNJFOC-20130409559

PATIENT
  Age: 30 Year
  Sex: Male
  Weight: 136.35 kg

DRUGS (1)
  1. RISPERDAL CONSTA [Suspect]
     Active Substance: RISPERIDONE
     Indication: SCHIZOPHRENIA, PARANOID TYPE
     Route: 030
     Dates: start: 20070201

REACTIONS (2)
  - Underdose [Not Recovered/Not Resolved]
  - Product reconstitution issue [Unknown]

NARRATIVE: CASE EVENT DATE: 20130416
